FAERS Safety Report 8904348 (Version 1)
Quarter: 2012Q4

REPORT INFORMATION
  Report Type: 
  Country: ES (occurrence: ES)
  Receive Date: 20121113
  Receipt Date: 20121113
  Transmission Date: 20130627
  Serious: Yes (Hospitalization)
  Sender: FDA-Public Use
  Company Number: ES-BAYER-2012-117131

PATIENT
  Age: 76 Year
  Sex: Female

DRUGS (2)
  1. CIPROFLOXACIN [Suspect]
     Indication: ACUTE DIVERTICULITIS
     Dosage: 200 mg, BID
     Route: 042
  2. METRONIDAZOLE [Suspect]
     Indication: ACUTE DIVERTICULITIS
     Dosage: 500 mg, TID
     Route: 042

REACTIONS (3)
  - Pathogen resistance [None]
  - Bacteraemia [Recovered/Resolved]
  - Diverticulitis [Recovered/Resolved]
